FAERS Safety Report 21281054 (Version 1)
Quarter: 2022Q3

REPORT INFORMATION
  Report Type: Spontaneous
  Country: MX (occurrence: MX)
  Receive Date: 20220901
  Receipt Date: 20220901
  Transmission Date: 20221026
  Serious: Yes (Death)
  Sender: FDA-Public Use
  Company Number: MX-ELI_LILLY_AND_COMPANY-MX202208015761

PATIENT
  Age: 75 Year
  Sex: Female

DRUGS (2)
  1. VERZENIO [Suspect]
     Active Substance: ABEMACICLIB
     Indication: Hormone receptor positive HER2 negative breast cancer
     Dosage: 150 MG, BID
     Route: 048
     Dates: start: 202004
  2. ANASTROZOLE [Concomitant]
     Active Substance: ANASTROZOLE
     Indication: Hormone receptor positive HER2 negative breast cancer
     Dosage: 1 MG, UNKNOWN
     Route: 065
     Dates: start: 202004

REACTIONS (3)
  - COVID-19 [Fatal]
  - Skin toxicity [Unknown]
  - Diarrhoea [Unknown]

NARRATIVE: CASE EVENT DATE: 20200801
